FAERS Safety Report 22609365 (Version 1)
Quarter: 2023Q2

REPORT INFORMATION
  Report Type: Spontaneous
  Country: AU (occurrence: AU)
  Receive Date: 20230616
  Receipt Date: 20230616
  Transmission Date: 20230722
  Serious: Yes (Hospitalization, Other)
  Sender: FDA-Public Use
  Company Number: AU-TASMAN PHARMA, INC.-2023TSM00112

PATIENT
  Sex: Female
  Weight: 86.5 kg

DRUGS (40)
  1. CLOZAPINE [Suspect]
     Active Substance: CLOZAPINE
     Dosage: 625 MG
     Dates: start: 20160715, end: 20160808
  2. CLOZAPINE [Suspect]
     Active Substance: CLOZAPINE
     Dosage: 675 MG
     Dates: start: 20220110, end: 20220206
  3. CLOZAPINE [Suspect]
     Active Substance: CLOZAPINE
     Dosage: 750 MG
     Dates: start: 20220428, end: 20220526
  4. CLOZAPINE [Suspect]
     Active Substance: CLOZAPINE
     Dosage: 625 MG
     Dates: start: 20160809, end: 20161229
  5. CLOZAPINE [Suspect]
     Active Substance: CLOZAPINE
     Dosage: 625 MG
     Dates: start: 20170125, end: 20170612
  6. CLOZAPINE [Suspect]
     Active Substance: CLOZAPINE
     Dosage: 700 MG
     Dates: start: 20170613, end: 20180116
  7. CLOZAPINE [Suspect]
     Active Substance: CLOZAPINE
     Dosage: 350 MG
     Dates: start: 20180117, end: 20180324
  8. CLOZAPINE [Suspect]
     Active Substance: CLOZAPINE
     Dosage: UNK
     Dates: start: 20180622, end: 20180627
  9. CLOZAPINE [Suspect]
     Active Substance: CLOZAPINE
     Dosage: 250 MG
     Dates: start: 20180628, end: 20180704
  10. CLOZAPINE [Suspect]
     Active Substance: CLOZAPINE
     Dosage: 500 MG
     Dates: start: 20180719, end: 20180801
  11. CLOZAPINE [Suspect]
     Active Substance: CLOZAPINE
     Dosage: UNK
     Dates: start: 20180804, end: 20180805
  12. CLOZAPINE [Suspect]
     Active Substance: CLOZAPINE
     Dosage: 50 MG
     Dates: start: 20180806, end: 20180812
  13. CLOZAPINE [Suspect]
     Active Substance: CLOZAPINE
     Dosage: 500 MG
     Dates: start: 20180813, end: 20180819
  14. CLOZAPINE [Suspect]
     Active Substance: CLOZAPINE
     Dosage: 600 MG
     Dates: start: 20180820, end: 20180826
  15. CLOZAPINE [Suspect]
     Active Substance: CLOZAPINE
     Dosage: 650 MG
     Dates: start: 20180827, end: 20181202
  16. CLOZAPINE [Suspect]
     Active Substance: CLOZAPINE
     Dosage: 300 MG
     Dates: start: 20181203, end: 20190225
  17. CLOZAPINE [Suspect]
     Active Substance: CLOZAPINE
     Dosage: 350 MG
     Dates: start: 20190226, end: 20190317
  18. CLOZAPINE [Suspect]
     Active Substance: CLOZAPINE
     Dosage: 12.5 MG
     Dates: start: 20190322, end: 20190328
  19. CLOZAPINE [Suspect]
     Active Substance: CLOZAPINE
     Dosage: 300 MG
     Dates: start: 20190329, end: 20190331
  20. CLOZAPINE [Suspect]
     Active Substance: CLOZAPINE
     Dosage: 600 MG
     Dates: start: 20190401, end: 20190410
  21. CLOZAPINE [Suspect]
     Active Substance: CLOZAPINE
     Dosage: 600 MG
     Dates: start: 20190417, end: 20190503
  22. CLOZAPINE [Suspect]
     Active Substance: CLOZAPINE
     Dosage: 150 MG
     Dates: start: 20210611, end: 20210617
  23. CLOZAPINE [Suspect]
     Active Substance: CLOZAPINE
     Dosage: 300 MG
     Dates: start: 20210618, end: 20210624
  24. CLOZAPINE [Suspect]
     Active Substance: CLOZAPINE
     Dosage: 425 MG
     Dates: start: 20210625, end: 20210701
  25. CLOZAPINE [Suspect]
     Active Substance: CLOZAPINE
     Dosage: 475 MG
     Dates: start: 20210702, end: 20210708
  26. CLOZAPINE [Suspect]
     Active Substance: CLOZAPINE
     Dosage: 525 MG
     Dates: start: 20210709, end: 20210715
  27. CLOZAPINE [Suspect]
     Active Substance: CLOZAPINE
     Dosage: 550 MG
     Dates: start: 20210716, end: 20210722
  28. CLOZAPINE [Suspect]
     Active Substance: CLOZAPINE
     Dosage: 575 MG
     Dates: start: 20210723, end: 20210729
  29. CLOZAPINE [Suspect]
     Active Substance: CLOZAPINE
     Dosage: 600 MG
     Dates: start: 20210730, end: 20210909
  30. CLOZAPINE [Suspect]
     Active Substance: CLOZAPINE
     Dosage: 625 MG
     Dates: start: 20210910, end: 20220109
  31. CLOZAPINE [Suspect]
     Active Substance: CLOZAPINE
     Dosage: 675 MG
     Dates: start: 20220207, end: 20220302
  32. CLOZAPINE [Suspect]
     Active Substance: CLOZAPINE
     Dosage: 700 MG
     Dates: start: 20220303, end: 20220330
  33. CLOZAPINE [Suspect]
     Active Substance: CLOZAPINE
     Dosage: 750 MG NOCTE (AT NIGHT)
     Dates: start: 20230530, end: 20230530
  34. CLOZAPINE [Suspect]
     Active Substance: CLOZAPINE
     Dosage: 625 MG
     Dates: start: 20161230, end: 20170124
  35. CLOZAPINE [Suspect]
     Active Substance: CLOZAPINE
     Dosage: 450 MG
     Dates: start: 20180705, end: 20180711
  36. CLOZAPINE [Suspect]
     Active Substance: CLOZAPINE
     Dosage: 500 MG
     Dates: start: 20180712, end: 20180718
  37. CLOZAPINE [Suspect]
     Active Substance: CLOZAPINE
     Dosage: 600 MG
     Dates: start: 20190411, end: 20190416
  38. CLOZAPINE [Suspect]
     Active Substance: CLOZAPINE
     Dosage: 725 MG
     Dates: start: 20220331, end: 20220427
  39. CLOZAPINE [Suspect]
     Active Substance: CLOZAPINE
     Dosage: 750 MG
     Dates: start: 20220527, end: 20230522
  40. CLOZAPINE [Suspect]
     Active Substance: CLOZAPINE
     Dosage: 25 MG
     Dates: start: 20230531

REACTIONS (5)
  - Hospitalisation [Not Recovered/Not Resolved]
  - Failure to suspend medication [Recovered/Resolved]
  - Drug dose titration not performed [Recovered/Resolved]
  - Coma scale abnormal [Unknown]
  - Treatment noncompliance [Recovered/Resolved]

NARRATIVE: CASE EVENT DATE: 20180101
